FAERS Safety Report 16994266 (Version 1)
Quarter: 2019Q4

REPORT INFORMATION
  Report Type: Report from Study
  Country: DE (occurrence: DE)
  Receive Date: 20191105
  Receipt Date: 20191105
  Transmission Date: 20200122
  Serious: Yes (Life-Threatening, Hospitalization)
  Sender: FDA-Public Use
  Company Number: DE-ROCHE-2454524

PATIENT
  Age: 94 Year
  Sex: Male
  Weight: 69 kg

DRUGS (35)
  1. VINCRISTINE [Suspect]
     Active Substance: VINCRISTINE
     Dosage: 1 MG, (INFUSION RATE 0.5 ML/MIN FROM 10:15 TO 10:17)
     Route: 041
     Dates: start: 20181024, end: 20181024
  2. DEKRISTOL [Concomitant]
     Active Substance: CHOLECALCIFEROL
     Indication: VITAMIN D DEFICIENCY
     Dosage: UNK
     Route: 048
     Dates: start: 20181015
  3. VINCRISTINE [Suspect]
     Active Substance: VINCRISTINE
     Indication: DIFFUSE LARGE B-CELL LYMPHOMA
     Dosage: 1 MG, (INFUSION RATE 0.5 ML/MIN FROM 08:45 TO 08:47)
     Route: 041
     Dates: start: 20190125, end: 20190125
  4. RITUXIMAB. [Suspect]
     Active Substance: RITUXIMAB
     Indication: DIFFUSE LARGE B-CELL LYMPHOMA
     Dosage: 670 MG, (INFUSION RATE 2.8 ML/MIN FROM 09:30 TO 13:30)
     Route: 041
     Dates: start: 20181030, end: 20181030
  5. RITUXIMAB. [Suspect]
     Active Substance: RITUXIMAB
     Dosage: 660 MG, (INFUSION RATE 3.7 ML/MIN FROM 08:50 TO 11:50)
     Route: 041
     Dates: start: 20190124, end: 20190124
  6. VINCRISTINE [Suspect]
     Active Substance: VINCRISTINE
     Dosage: 1 MG, (INFUSION RATE 0.2 ML/MIN FROM 09:20 TO 09:25)
     Route: 041
     Dates: start: 20190103, end: 20190103
  7. DOXORUBICIN [Suspect]
     Active Substance: DOXORUBICIN
     Dosage: 22.5 MG, (INFUSION RATE 5.0 ML/MIN FROM 09:10 TO 09:30)
     Route: 041
     Dates: start: 20190125, end: 20190125
  8. DOXORUBICIN [Suspect]
     Active Substance: DOXORUBICIN
     Dosage: 45 MG, (INFUSION RATE 5.0 ML/MIN FROM 09:35 TO 09:55)
     Route: 041
     Dates: start: 20181031, end: 20181031
  9. CYCLOPHOSPHAMIDE. [Suspect]
     Active Substance: CYCLOPHOSPHAMIDE
     Indication: DIFFUSE LARGE B-CELL LYMPHOMA
     Dosage: 356 MG, (INFUSION RATE 6.25 ML/MIN FROM 09:55 TO 11:15)
     Route: 041
     Dates: start: 20190125, end: 20190125
  10. MOVICOL [Concomitant]
     Active Substance: POLYETHYLENE GLYCOL 3350\POTASSIUM CHLORIDE\SODIUM BICARBONATE\SODIUM CHLORIDE
     Indication: PROPHYLAXIS
     Dosage: UNK
     Route: 048
     Dates: start: 20181122
  11. VALSARTAN. [Concomitant]
     Active Substance: VALSARTAN
     Indication: HYPERTENSION
     Dosage: 80 MG, UNK
     Route: 048
  12. RITUXIMAB. [Suspect]
     Active Substance: RITUXIMAB
     Dosage: 660 MG, (INFUSION RATE 3.7 ML/MIN FROM 09:55 TO 12:55)
     Route: 041
     Dates: start: 20190102, end: 20190102
  13. RITUXIMAB. [Suspect]
     Active Substance: RITUXIMAB
     Dosage: 660 MG, (INFUSION RATE 3.8 ML/MIN FROM 09:10 TO 12:05)
     Route: 041
     Dates: start: 20190213, end: 20190213
  14. RITUXIMAB. [Suspect]
     Active Substance: RITUXIMAB
     Dosage: 667 MG, (INFUSION RATE 3.8 ML/MIN FROM 09:10 TO 12:05)
     Route: 041
     Dates: start: 20190313
  15. PREDNISONE. [Suspect]
     Active Substance: PREDNISONE
     Dosage: 500 MG, UNK
     Route: 048
     Dates: start: 20181213
  16. CYCLOPHOSPHAMIDE. [Suspect]
     Active Substance: CYCLOPHOSPHAMIDE
     Dosage: 358 MG, (INFUSION RATE 8.3 ML/MIN FROM 09:45 TO 10:45)
     Route: 041
     Dates: start: 20181213, end: 20181213
  17. CYCLOPHOSPHAMIDE. [Suspect]
     Active Substance: CYCLOPHOSPHAMIDE
     Dosage: 716 MG, (INFUSION RATE 4.0 ML/MIN FROM 10:10 TO 12:15)
     Route: 041
     Dates: start: 20181031, end: 20181031
  18. METOPROLOL. [Concomitant]
     Active Substance: METOPROLOL
     Indication: HYPERTENSION
     Dosage: 23.75 MG, UNK
     Route: 048
  19. PREDNISONE. [Suspect]
     Active Substance: PREDNISONE
     Indication: DIFFUSE LARGE B-CELL LYMPHOMA
     Dosage: 500 MG, UNK
     Route: 048
     Dates: start: 20181024, end: 20181028
  20. CYCLOPHOSPHAMIDE. [Suspect]
     Active Substance: CYCLOPHOSPHAMIDE
     Dosage: 358 MG, (INFUSION RATE 7.7 ML/MIN FROM 10:25 TO 11:30)
     Route: 041
     Dates: start: 20190103, end: 20190103
  21. FOLSAEURE [Concomitant]
     Active Substance: FOLIC ACID
     Indication: PROPHYLAXIS
     Dosage: 5 MG, UNK
     Route: 048
     Dates: start: 20181024
  22. COTRIM FORTE [Concomitant]
     Active Substance: SULFAMETHOXAZOLE\TRIMETHOPRIM
     Indication: PROPHYLAXIS
     Dosage: 960 MG, UNK
     Route: 048
     Dates: start: 20181024
  23. NEULASTA [Concomitant]
     Active Substance: PEGFILGRASTIM
     Indication: PRODUCT USED FOR UNKNOWN INDICATION
     Dosage: 6 MG, UNK
     Route: 058
     Dates: start: 20181104
  24. PREDNISONE. [Suspect]
     Active Substance: PREDNISONE
     Dosage: 4 MG, UNK
     Route: 048
     Dates: start: 20190213, end: 20190213
  25. PREDNISONE. [Suspect]
     Active Substance: PREDNISONE
     Dosage: 4 MG, UNK
     Route: 048
     Dates: start: 20190313, end: 20190313
  26. DOXORUBICIN [Suspect]
     Active Substance: DOXORUBICIN
     Indication: DIFFUSE LARGE B-CELL LYMPHOMA
     Dosage: 22.5 MG, (INFUSION RATE 5.0 ML/MIN FROM 09:40 TO 10:00)
     Route: 041
     Dates: start: 20190103, end: 20190103
  27. PREDNISONE. [Suspect]
     Active Substance: PREDNISONE
     Dosage: 500 MG, UNK
     Route: 048
     Dates: start: 20190103
  28. DOXORUBICIN [Suspect]
     Active Substance: DOXORUBICIN
     Dosage: 22.5 MG, (INFUSION RATE 6.6 ML/MIN FROM 09:00 TO 09:15)
     Route: 041
     Dates: start: 20181213, end: 20181213
  29. TORASEMIDE [Concomitant]
     Active Substance: TORSEMIDE
     Indication: CARDIAC FAILURE
     Dosage: 5 MG, UNK
     Route: 048
  30. RITUXIMAB. [Suspect]
     Active Substance: RITUXIMAB
     Dosage: 670 MG, (INFUSION RATE 2.8 ML/MIN FROM 09:30 TO 13:30)
     Route: 041
     Dates: start: 20181212, end: 20181212
  31. PREDNISONE. [Suspect]
     Active Substance: PREDNISONE
     Dosage: 500 MG, UNK
     Route: 048
     Dates: start: 20190125, end: 20190129
  32. VINCRISTINE [Suspect]
     Active Substance: VINCRISTINE
     Dosage: 1 MG, (INFUSION RATE 0.2 ML/MIN FROM 08:40 TO 08:45)
     Route: 041
     Dates: start: 20181213, end: 20181213
  33. LERCANIDIPINE [Concomitant]
     Active Substance: LERCANIDIPINE
     Indication: HYPERTENSION
     Dosage: 20 MG, UNK
     Route: 048
     Dates: end: 20180212
  34. AMPHO MORONAL [Concomitant]
     Active Substance: AMPHOTERICIN B
     Indication: PROPHYLAXIS
     Dosage: UNK
     Route: 048
     Dates: start: 20181024
  35. APIXABAN [Concomitant]
     Active Substance: APIXABAN
     Indication: ARRHYTHMIA
     Dosage: UNK
     Route: 048

REACTIONS (18)
  - C-reactive protein increased [Not Recovered/Not Resolved]
  - Feeling hot [Recovered/Resolved]
  - Blood potassium increased [Recovered/Resolved]
  - Oesophageal candidiasis [Recovered/Resolved]
  - Platelet count decreased [Recovered/Resolved]
  - Pancytopenia [Unknown]
  - Taste disorder [Recovered/Resolved]
  - Dysphagia [Recovered/Resolved]
  - White blood cell count decreased [Recovered/Resolved]
  - Blood lactate dehydrogenase increased [Not Recovered/Not Resolved]
  - Blood creatinine increased [Not Recovered/Not Resolved]
  - Gamma-glutamyltransferase increased [Not Recovered/Not Resolved]
  - Body temperature increased [Recovered/Resolved]
  - Decreased appetite [Recovered/Resolved]
  - Serum ferritin increased [Not Recovered/Not Resolved]
  - Muscular weakness [Recovered/Resolved]
  - Anaemia [Recovered/Resolved]
  - Reticulocyte count increased [Not Recovered/Not Resolved]

NARRATIVE: CASE EVENT DATE: 20181029
